FAERS Safety Report 9282089 (Version 1)
Quarter: 2013Q2

REPORT INFORMATION
  Report Type: Spontaneous
  Country: US (occurrence: None)
  Receive Date: 20130508
  Receipt Date: 20130508
  Transmission Date: 20140414
  Serious: Yes (Other)
  Sender: FDA-Public Use
  Company Number: None

PATIENT
  Age: 42 Year
  Sex: Female
  Weight: 73.48 kg

DRUGS (1)
  1. CRIZOTINIB [Suspect]
     Indication: NON-SMALL CELL LUNG CANCER
     Dosage: 250 BID PO
     Route: 048
     Dates: start: 20120901, end: 20130301

REACTIONS (6)
  - Blood creatine increased [None]
  - Proteinuria [None]
  - Hypertension [None]
  - Hepatic enzyme increased [None]
  - Sinus headache [None]
  - Cardiac failure congestive [None]
